FAERS Safety Report 11679456 (Version 3)
Quarter: 2015Q4

REPORT INFORMATION
  Report Type: Spontaneous
  Country: US (occurrence: US)
  Receive Date: 20151027
  Receipt Date: 20151110
  Transmission Date: 20160304
  Serious: No
  Sender: FDA-Public Use
  Company Number: US-ELI_LILLY_AND_COMPANY-US201002004983

PATIENT
  Age: 91 Year
  Sex: Female

DRUGS (11)
  1. FORTEO [Suspect]
     Active Substance: TERIPARATIDE
     Dosage: 20 UG, QD
  2. CALCIUM [Concomitant]
     Active Substance: CALCIUM
     Dosage: 2 D/F, UNKNOWN
     Dates: end: 20100211
  3. VITAMIN D [Concomitant]
     Active Substance: CHOLECALCIFEROL
  4. FORTEO [Suspect]
     Active Substance: TERIPARATIDE
     Dosage: 20 UG, QD
     Route: 065
  5. FORTEO [Suspect]
     Active Substance: TERIPARATIDE
     Dosage: 20 UG, QD
  6. CALCIUM [Concomitant]
     Active Substance: CALCIUM
     Dosage: 1 D/F, DAILY (1/D)
     Dates: start: 20100216
  7. FORTEO [Suspect]
     Active Substance: TERIPARATIDE
     Dosage: 20 UG, QD
     Route: 065
     Dates: end: 20100312
  8. FORTEO [Suspect]
     Active Substance: TERIPARATIDE
     Dosage: 20 UG, QD
     Route: 065
  9. FORTEO [Suspect]
     Active Substance: TERIPARATIDE
     Indication: OSTEOPOROSIS
     Dosage: 20 UG, QD
     Route: 065
     Dates: start: 20100112
  10. FORTEO [Suspect]
     Active Substance: TERIPARATIDE
     Dosage: 20 UG, QD
     Route: 065
  11. FORTEO [Suspect]
     Active Substance: TERIPARATIDE
     Dosage: 20 UG, QD
     Route: 065

REACTIONS (19)
  - Nasopharyngitis [Unknown]
  - Musculoskeletal discomfort [Recovered/Resolved]
  - Hypoacusis [Not Recovered/Not Resolved]
  - Dizziness [Recovered/Resolved]
  - Dizziness [Recovered/Resolved]
  - Feeling abnormal [Unknown]
  - Dehydration [Recovering/Resolving]
  - Blood calcium increased [Unknown]
  - Hearing impaired [Unknown]
  - Dehydration [Unknown]
  - Movement disorder [Recovered/Resolved]
  - Pain in extremity [Unknown]
  - Dizziness [Unknown]
  - Cystitis [Unknown]
  - Vitamin D decreased [Unknown]
  - Ocular discomfort [Unknown]
  - Asthenia [Recovered/Resolved]
  - Muscle spasms [Recovered/Resolved]
  - Muscle spasms [Unknown]

NARRATIVE: CASE EVENT DATE: 201001
